FAERS Safety Report 5807143-6 (Version None)
Quarter: 2008Q3

REPORT INFORMATION
  Report Type: 
  Country: None (occurrence: None)
  Receive Date: 20080711
  Receipt Date: 20080711
  Transmission Date: 20090109
  Serious: Yes (Other)
  Sender: FDA-Public Use
  Company Number: A0737175A

PATIENT
  Age: 21 Year
  Sex: Female
  Weight: 85 kg

DRUGS (1)
  1. ALLI [Suspect]
     Dates: start: 20080701

REACTIONS (6)
  - COITAL BLEEDING [None]
  - DIARRHOEA [None]
  - HYPOMENORRHOEA [None]
  - POLYMENORRHOEA [None]
  - VAGINAL DISCHARGE [None]
  - VAGINAL HAEMORRHAGE [None]
